FAERS Safety Report 9457772 (Version 2)
Quarter: 2013Q3

REPORT INFORMATION
  Report Type: Spontaneous
  Country: US (occurrence: None)
  Receive Date: 20130809
  Receipt Date: 20130814
  Transmission Date: 20140515
  Serious: Yes (Other)
  Sender: FDA-Public Use
  Company Number: 130258

PATIENT
  Age: 81 Year
  Sex: Female
  Weight: 58.97 kg

DRUGS (7)
  1. SUPREP BOWEL PREP KIT [Suspect]
     Indication: COLONOSCOPY
     Dosage: 2 X 6OZ. BOTTLE, 1X, PO
     Route: 048
     Dates: start: 20130714, end: 20130715
  2. CITALOPRAM [Concomitant]
  3. AMLODIPINE [Concomitant]
  4. TRIMETHOPRIM [Concomitant]
  5. CEPHALEXIN [Concomitant]
  6. TYLENOL 3 [Concomitant]
  7. CEFUROXIME [Suspect]

REACTIONS (4)
  - Coordination abnormal [None]
  - Hypoaesthesia [None]
  - Lethargy [None]
  - Urinary tract infection [None]
